FAERS Safety Report 9540135 (Version 1)
Quarter: 2013Q3

REPORT INFORMATION
  Report Type: Spontaneous
  Country: JP (occurrence: JP)
  Receive Date: 20130920
  Receipt Date: 20130920
  Transmission Date: 20140515
  Serious: Yes (Other)
  Sender: FDA-Public Use
  Company Number: JP-SANOFI-AVENTIS-THYM-1003979

PATIENT
  Age: 36 Year
  Sex: Male

DRUGS (17)
  1. THYMOGLOBULIN [Suspect]
     Indication: LIVER TRANSPLANT REJECTION
     Dosage: UNK
     Route: 065
     Dates: start: 20111013
  2. THYMOGLOBULIN [Suspect]
     Indication: LIVER TRANSPLANT REJECTION
     Dosage: 1.5 UNK, UNK
     Route: 065
     Dates: start: 20111027, end: 20111031
  3. METHYLPREDNISOLONE SODIUM SUCCINATE [Concomitant]
     Dosage: UNK
     Route: 065
     Dates: start: 20111017, end: 20111017
  4. METHYLPREDNISOLONE SODIUM SUCCINATE [Concomitant]
     Dosage: 150 MG, UNK
     Route: 065
     Dates: start: 20111027, end: 20111031
  5. PREDNISOLONE [Concomitant]
     Dosage: 20 MG, UNK
     Route: 065
     Dates: start: 20111015, end: 20111017
  6. PREDNISOLONE [Concomitant]
     Dosage: UNK
     Route: 065
     Dates: start: 20111101, end: 20111220
  7. TACROLIMUS [Concomitant]
     Dosage: UNK
     Route: 065
     Dates: start: 20040226
  8. HYDROCORTISONE SODIUM SUCCINATE [Concomitant]
     Indication: HEPATIC FUNCTION ABNORMAL
     Dosage: 1000 MG, UNK
     Route: 065
     Dates: start: 20111013, end: 20111013
  9. HYDROCORTISONE SODIUM SUCCINATE [Concomitant]
     Indication: HEPATIC FUNCTION ABNORMAL
     Dosage: 500 MG, UNK
     Route: 065
     Dates: start: 20111014, end: 20111014
  10. HYDROCORTISONE SODIUM SUCCINATE [Concomitant]
     Indication: HEPATIC FUNCTION ABNORMAL
     Dosage: 1000 MG, UNK
     Route: 065
     Dates: start: 20111015, end: 20111017
  11. ACETYLSALICYLIC ACID [Concomitant]
     Dosage: UNK
     Route: 065
     Dates: end: 20111014
  12. CLOPIDOGREL [Concomitant]
     Dosage: UNK
     Route: 065
     Dates: end: 20111014
  13. ENALAPRIL MALEATE [Concomitant]
     Dosage: UNK
     Route: 065
     Dates: end: 20111014
  14. ROSUVASTATIN [Concomitant]
     Dosage: UNK
     Route: 065
     Dates: end: 20111014
  15. CARVEDILOL [Concomitant]
     Dosage: UNK
     Route: 065
     Dates: end: 20111014
  16. WARFARIN [Concomitant]
     Dosage: UNK
     Route: 065
     Dates: end: 20111014
  17. WARFARIN POTASSIUM [Concomitant]
     Dosage: UNK
     Route: 065
     Dates: end: 20111014

REACTIONS (2)
  - Transplant rejection [Unknown]
  - Pyrexia [Recovered/Resolved]
